FAERS Safety Report 10072650 (Version 1)
Quarter: 2014Q2

REPORT INFORMATION
  Report Type: Spontaneous
  Country: US (occurrence: US)
  Receive Date: 20140411
  Receipt Date: 20140411
  Transmission Date: 20141212
  Serious: No
  Sender: FDA-Public Use
  Company Number: US-PFIZER INC-2014099601

PATIENT
  Age: 45 Year
  Sex: Male

DRUGS (2)
  1. DILANTIN KAPSEAL [Suspect]
     Dosage: 100 MG, 3X/DAY
  2. KEPPRA [Suspect]
     Dosage: 750 MG, 2X/DAY

REACTIONS (1)
  - Drug hypersensitivity [Unknown]
